FAERS Safety Report 18170291 (Version 3)
Quarter: 2020Q4

REPORT INFORMATION
  Report Type: Report from Study
  Country: FR (occurrence: FR)
  Receive Date: 20200819
  Receipt Date: 20201123
  Transmission Date: 20210113
  Serious: Yes (Hospitalization)
  Sender: FDA-Public Use
  Company Number: FR-ROCHE-2659575

PATIENT
  Age: 82 Year
  Sex: Male

DRUGS (6)
  1. BCG [Suspect]
     Active Substance: BCG VACCINE
     Indication: BLADDER CANCER
     Dosage: ON 13/MAR/2020, HE RECEIVED LAST DOSE OF BCG.?ON 10/SEP/2020, HE RECEIVED LAST DOSE OF BCG.?CUMULATI
     Route: 043
     Dates: start: 20190904
  2. ATEZOLIZUMAB. [Suspect]
     Active Substance: ATEZOLIZUMAB
     Indication: BLADDER CANCER
     Dosage: ON 19/MAY/2020, HE RECEIVED LAST DOSE OF ATEZOLIZUMAB PRIOR TO SAE ONSET.?ON 09/JUN/2020, HE RECEIVE
     Route: 041
     Dates: start: 20190904
  3. KARDEGIC [Concomitant]
     Active Substance: ASPIRIN DL-LYSINE
     Indication: ISCHAEMIA
     Route: 048
  4. LEVOTHYROX [Concomitant]
     Active Substance: LEVOTHYROXINE
     Indication: HYPOTHYROIDISM
     Route: 048
  5. CORTANCYL [Concomitant]
     Active Substance: PREDNISONE
     Indication: ARTHRALGIA
     Route: 048
  6. LIPTRUZET [Concomitant]
     Active Substance: ATORVASTATIN CALCIUM\EZETIMIBE
     Indication: DYSLIPIDAEMIA
     Dosage: 10/80 MG
     Route: 048

REACTIONS (2)
  - Peripheral ischaemia [Not Recovered/Not Resolved]
  - Bacteraemia [Recovered/Resolved]

NARRATIVE: CASE EVENT DATE: 20200806
